FAERS Safety Report 4497095-6 (Version None)
Quarter: 2004Q4

REPORT INFORMATION
  Report Type: 
  Country: None (occurrence: None)
  Receive Date: 20041110
  Receipt Date: 20041102
  Transmission Date: 20050328
  Serious: Yes (Death, Hospitalization)
  Sender: FDA-Public Use
  Company Number: ES-JNJFOC-20040707300

PATIENT
  Sex: Female

DRUGS (11)
  1. REMICADE [Suspect]
     Indication: RHEUMATOID ARTHRITIS
     Route: 042
  2. METHOTREXATE [Suspect]
     Indication: DRUG USE FOR UNKNOWN INDICATION
     Route: 049
  3. IBUPROFEN [Concomitant]
  4. URBASON [Concomitant]
  5. CELECOXIB [Concomitant]
  6. ACFOL [Concomitant]
     Dosage: 1 TABLET PER DAY, 3 DAYS PER WEEK
  7. OMEPRAZOLE [Concomitant]
  8. IRON [Concomitant]
  9. CALCIUM [Concomitant]
  10. VITAMIN D SUPPLEMENT [Concomitant]
  11. ALENDRONATE SODIUM [Concomitant]

REACTIONS (4)
  - ACUTE PULMONARY OEDEMA [None]
  - CARDIO-RESPIRATORY ARREST [None]
  - LEUKAEMIA PLASMACYTIC [None]
  - VENTRICULAR FIBRILLATION [None]
